FAERS Safety Report 9386595 (Version 1)
Quarter: 2013Q3

REPORT INFORMATION
  Report Type: Spontaneous
  Country: DE (occurrence: DE)
  Receive Date: 20130708
  Receipt Date: 20130708
  Transmission Date: 20140515
  Serious: Yes (Other)
  Sender: FDA-Public Use
  Company Number: DE-009507513-1307DEU002610

PATIENT
  Age: 66 Year
  Sex: Female
  Weight: 85 kg

DRUGS (7)
  1. VELMETIA [Suspect]
     Dosage: DAILY DOSE: 100/2000 MG
     Route: 048
     Dates: start: 20130625, end: 20130629
  2. BISOPROLOL [Concomitant]
     Dosage: DAILY DOSE: 5 MG
  3. TORSEMIDE [Concomitant]
     Dosage: DAILY DOSE: 10 MG
  4. TRIMIPRAMINE [Concomitant]
     Dosage: DAILY DOSE: 4-6 DROPS
  5. SIMVABETA [Concomitant]
     Dosage: DAILY DOSE: 40 MG
  6. ASS 100 [Concomitant]
     Dosage: DAILY DOSE: 100 MG
  7. OLMETEC [Concomitant]
     Dosage: DAILY DOSE: 100 MG

REACTIONS (4)
  - Epistaxis [Recovered/Resolved]
  - Nausea [Recovered/Resolved]
  - Vomiting [Recovered/Resolved]
  - Diarrhoea [Recovered/Resolved]
